FAERS Safety Report 7529379-9 (Version None)
Quarter: 2011Q2

REPORT INFORMATION
  Report Type: 
  Country: None (occurrence: None)
  Receive Date: 20110607
  Receipt Date: 20110530
  Transmission Date: 20111010
  Serious: Yes (Other)
  Sender: FDA-Public Use
  Company Number: JP-JNJFOC-20110601785

PATIENT
  Age: 6 Year
  Sex: Male

DRUGS (1)
  1. RISPERDAL [Suspect]
     Indication: AUTISM SPECTRUM DISORDER
     Route: 048
     Dates: start: 20101101

REACTIONS (3)
  - ASPARTATE AMINOTRANSFERASE INCREASED [None]
  - BLOOD CREATINE PHOSPHOKINASE INCREASED [None]
  - BLOOD LACTATE DEHYDROGENASE INCREASED [None]
